FAERS Safety Report 13589242 (Version 1)
Quarter: 2017Q2

REPORT INFORMATION
  Report Type: Spontaneous
  Country: US (occurrence: US)
  Receive Date: 20170526
  Receipt Date: 20170526
  Transmission Date: 20170830
  Serious: Yes (Hospitalization)
  Sender: FDA-Public Use
  Company Number: None

PATIENT
  Age: 54 Year
  Sex: Male

DRUGS (1)
  1. TEMOZOLOMIDE 140MG SANDOZ [Suspect]
     Active Substance: TEMOZOLOMIDE
     Indication: PRODUCT USED FOR UNKNOWN INDICATION
     Dosage: 420MG ONCE DAILY FOR 5 DAYS EVERY 30 DAYS PO
     Route: 048
     Dates: start: 20170309, end: 20170505

REACTIONS (1)
  - Vomiting [None]

NARRATIVE: CASE EVENT DATE: 20170410
